FAERS Safety Report 5862931-5 (Version None)
Quarter: 2008Q3

REPORT INFORMATION
  Report Type: 
  Country: None (occurrence: None)
  Receive Date: 20080828
  Receipt Date: 20080821
  Transmission Date: 20090109
  Serious: Yes (Hospitalization)
  Sender: FDA-Public Use
  Company Number: A0744831A

PATIENT
  Age: 60 Year
  Sex: Female
  Weight: 127.3 kg

DRUGS (6)
  1. AVANDAMET [Suspect]
     Dosage: 2MG TWICE PER DAY
     Route: 048
     Dates: start: 20060811, end: 20070501
  2. LOPRESSOR [Concomitant]
  3. TOPROL-XL [Concomitant]
  4. PREDNISOLONE [Concomitant]
  5. CELEBREX [Concomitant]
  6. VIOXX [Concomitant]

REACTIONS (5)
  - ANEURYSM [None]
  - CARDIAC FAILURE CONGESTIVE [None]
  - CEREBROVASCULAR ACCIDENT [None]
  - FLUID RETENTION [None]
  - PULMONARY OEDEMA [None]
